FAERS Safety Report 7400124-0 (Version None)
Quarter: 2011Q2

REPORT INFORMATION
  Report Type: 
  Country: None (occurrence: None)
  Receive Date: 20110407
  Receipt Date: 20101124
  Transmission Date: 20111010
  Serious: No
  Sender: FDA-Public Use
  Company Number: US-KINGPHARMUSA00001-K201001470

PATIENT
  Sex: Female
  Weight: 83.9 kg

DRUGS (4)
  1. SKELAXIN [Suspect]
     Indication: BACK PAIN
     Dosage: 800 MG, PRN
     Route: 048
     Dates: start: 20101018, end: 20101122
  2. CRESTOR [Concomitant]
     Dosage: 10 MG, QD
  3. DIURETICS [Concomitant]
  4. LISINOPRIL [Concomitant]
     Dosage: 20 MG, QD

REACTIONS (1)
  - JOINT SWELLING [None]
